FAERS Safety Report 10706092 (Version 2)
Quarter: 2015Q1

REPORT INFORMATION
  Report Type: Spontaneous
  Country: FR (occurrence: FR)
  Receive Date: 20150113
  Receipt Date: 20150121
  Transmission Date: 20150721
  Serious: Yes (Hospitalization, Other)
  Sender: FDA-Public Use
  Company Number: FR-BIOGENIDEC-2015BI003450

PATIENT
  Age: 58 Year
  Sex: Male

DRUGS (10)
  1. BACLOFENE [Concomitant]
     Active Substance: BACLOFEN
  2. XARELTO [Concomitant]
     Active Substance: RIVAROXABAN
  3. ATARAX [Concomitant]
     Active Substance: HYDROXYZINE\HYDROXYZINE HYDROCHLORIDE
  4. CYMBALTA [Concomitant]
     Active Substance: DULOXETINE HYDROCHLORIDE
  5. ODRIK [Concomitant]
     Active Substance: TRANDOLAPRIL
  6. TEGRETOL [Concomitant]
     Active Substance: CARBAMAZEPINE
  7. TYSABRI [Suspect]
     Active Substance: NATALIZUMAB
     Indication: MULTIPLE SCLEROSIS
     Route: 042
     Dates: start: 201206
  8. AMLOR [Concomitant]
     Active Substance: AMLODIPINE BESYLATE
  9. FAMPYRA [Concomitant]
     Active Substance: DALFAMPRIDINE
  10. XATRAL [Concomitant]
     Active Substance: ALFUZOSIN

REACTIONS (2)
  - Herpes zoster [Recovered/Resolved]
  - Pulmonary embolism [Unknown]

NARRATIVE: CASE EVENT DATE: 201302
